FAERS Safety Report 5194292-1 (Version None)
Quarter: 2006Q4

REPORT INFORMATION
  Report Type: 
  Country: None (occurrence: None)
  Receive Date: 20061228
  Receipt Date: 20060825
  Transmission Date: 20070319
  Serious: Yes (Other)
  Sender: FDA-Public Use
  Company Number: JP-PFIZER INC-2006106659

PATIENT
  Sex: Female
  Weight: 39.6 kg

DRUGS (5)
  1. LIPITOR [Suspect]
     Indication: HYPERCHOLESTEROLAEMIA
     Dosage: DAILY DOSE:5MG
     Route: 048
  2. NORVASC [Concomitant]
     Indication: HYPERTENSION
     Route: 048
  3. ANGIOTENSIN II ANTAGONISTS [Concomitant]
     Indication: HYPERTENSION
  4. ATELEC [Concomitant]
     Indication: HYPERTENSION
     Route: 048
  5. MEVALOTIN [Concomitant]
     Route: 048

REACTIONS (3)
  - BLOOD CREATININE INCREASED [None]
  - GLOMERULONEPHRITIS CHRONIC [None]
  - PROTEIN URINE PRESENT [None]
